FAERS Safety Report 15951383 (Version 1)
Quarter: 2019Q1

REPORT INFORMATION
  Report Type: Spontaneous
  Country: CN (occurrence: CN)
  Receive Date: 20190211
  Receipt Date: 20190211
  Transmission Date: 20190417
  Serious: Yes (Other)
  Sender: FDA-Public Use
  Company Number: CN-PFIZER INC-2019051533

PATIENT
  Age: 56 Year
  Sex: Female
  Weight: 67 kg

DRUGS (4)
  1. URSODEOXYCHOLIC ACID [Concomitant]
     Active Substance: URSODIOL
     Indication: AUTOIMMUNE HEPATITIS
     Dosage: 0.3 G, 3X/DAY
     Route: 048
     Dates: start: 20190109, end: 20190131
  2. POLYENE PHOSPHATIDYLCHOLINE [Concomitant]
     Active Substance: PHOSPHOLIPID
     Indication: AUTOIMMUNE HEPATITIS
     Dosage: 465 MG, 1X/DAY
     Route: 041
     Dates: start: 20190107, end: 20190131
  3. LV TING NUO [Concomitant]
     Indication: AUTOIMMUNE HEPATITIS
     Dosage: 2.4 G, 1X/DAY
     Route: 041
     Dates: start: 20190107, end: 20190131
  4. MEDROL [Suspect]
     Active Substance: METHYLPREDNISOLONE
     Indication: AUTOIMMUNE HEPATITIS
     Dosage: 36 MG, 1X/DAY
     Route: 048
     Dates: start: 20190108, end: 20190112

REACTIONS (2)
  - Blood glucose increased [Recovering/Resolving]
  - Product use in unapproved indication [Recovered/Resolved]

NARRATIVE: CASE EVENT DATE: 20190108
